FAERS Safety Report 20441065 (Version 3)
Quarter: 2022Q1

REPORT INFORMATION
  Report Type: Spontaneous
  Country: ES (occurrence: ES)
  Receive Date: 20220208
  Receipt Date: 20220303
  Transmission Date: 20220424
  Serious: Yes (Hospitalization, Other)
  Sender: FDA-Public Use
  Company Number: ES-MLMSERVICE-20220120-3327993-1

PATIENT
  Age: 83 Year
  Sex: Female

DRUGS (1)
  1. AMIODARONE [Suspect]
     Active Substance: AMIODARONE
     Indication: Atrial fibrillation
     Dosage: UNK (3 DAYS A WEEK)
     Route: 065

REACTIONS (3)
  - Pulmonary toxicity [Recovered/Resolved]
  - Pneumonitis [Recovered/Resolved]
  - Pulmonary oedema [Recovered/Resolved]
